FAERS Safety Report 13796764 (Version 5)
Quarter: 2018Q3

REPORT INFORMATION
  Report Type: Report from Study
  Country: US (occurrence: US)
  Receive Date: 20170726
  Receipt Date: 20180918
  Transmission Date: 20181010
  Serious: No
  Sender: FDA-Public Use
  Company Number: US-AMGEN-USASL2017080039

PATIENT
  Sex: Male

DRUGS (2)
  1. KYPROLIS [Suspect]
     Active Substance: CARFILZOMIB
     Indication: PLASMA CELL MYELOMA
     Dosage: UNK
     Route: 065
  2. NEUPOGEN [Suspect]
     Active Substance: FILGRASTIM
     Indication: PRODUCT USED FOR UNKNOWN INDICATION
     Dosage: UNK
     Route: 065

REACTIONS (10)
  - Laboratory test abnormal [Unknown]
  - Dysphonia [Unknown]
  - Tremor [Unknown]
  - Oedema peripheral [Unknown]
  - Fluid retention [Unknown]
  - Psychomotor hyperactivity [Unknown]
  - Localised infection [Unknown]
  - Dyspnoea [Unknown]
  - Arterial occlusive disease [Unknown]
  - Peripheral swelling [Unknown]

NARRATIVE: CASE EVENT DATE: 2017
